FAERS Safety Report 7184481-9 (Version None)
Quarter: 2010Q4

REPORT INFORMATION
  Report Type: 
  Country: None (occurrence: None)
  Receive Date: 20101123
  Receipt Date: 20100915
  Transmission Date: 20110411
  Serious: No
  Sender: FDA-Public Use
  Company Number: 018842

PATIENT
  Sex: Male

DRUGS (1)
  1. CIMZIA [Suspect]
     Dosage: SUBCUTANEOUS
     Route: 058
     Dates: start: 20100702

REACTIONS (2)
  - DRY SKIN [None]
  - PRURITUS [None]
